FAERS Safety Report 8045763-1 (Version None)
Quarter: 2012Q1

REPORT INFORMATION
  Report Type: 
  Country: None (occurrence: None)
  Receive Date: 20120112
  Receipt Date: 20120112
  Transmission Date: 20120608
  Serious: No
  Sender: FDA-Public Use
  Company Number: None

PATIENT
  Sex: Male
  Weight: 51.7 kg

DRUGS (3)
  1. TAXOL [Suspect]
     Dosage: 277 MG
  2. BEVACIZUMAB (RHUMAB VEGF) [Suspect]
     Dosage: 810 MG
  3. CARBOPLATIN [Suspect]
     Dosage: 395 MG

REACTIONS (22)
  - PERIPHERAL SENSORIMOTOR NEUROPATHY [None]
  - LUNG INFECTION [None]
  - DECREASED APPETITE [None]
  - DEHYDRATION [None]
  - HYPERURICAEMIA [None]
  - DYSPHAGIA [None]
  - HYPOMAGNESAEMIA [None]
  - WEIGHT DECREASED [None]
  - ACTIVITIES OF DAILY LIVING IMPAIRED [None]
  - HYPOPHOSPHATAEMIA [None]
  - MALNUTRITION [None]
  - METASTATIC NEOPLASM [None]
  - TUMOUR LYSIS SYNDROME [None]
  - WALKING AID USER [None]
  - HYPOALBUMINAEMIA [None]
  - NAUSEA [None]
  - BLOOD DISORDER [None]
  - HYPERBILIRUBINAEMIA [None]
  - RENAL IMPAIRMENT [None]
  - VOMITING [None]
  - HYPOCALCAEMIA [None]
  - DYSGEUSIA [None]
